FAERS Safety Report 10722049 (Version 2)
Quarter: 2015Q2

REPORT INFORMATION
  Report Type: Spontaneous
  Country: US (occurrence: US)
  Receive Date: 20150119
  Receipt Date: 20150401
  Transmission Date: 20150821
  Serious: Yes (Other)
  Sender: FDA-Public Use
  Company Number: US-PFIZER INC-2015018012

PATIENT
  Age: 54 Year
  Sex: Female
  Weight: 56.69 kg

DRUGS (1)
  1. XELJANZ [Suspect]
     Active Substance: TOFACITINIB CITRATE
     Indication: RHEUMATOID ARTHRITIS
     Dosage: 5 MG, BID
     Route: 048
     Dates: start: 20140729, end: 20150227

REACTIONS (3)
  - Skin lesion [Unknown]
  - Furuncle [Unknown]
  - Back disorder [Unknown]

NARRATIVE: CASE EVENT DATE: 20150109
